FAERS Safety Report 26182366 (Version 1)
Quarter: 2025Q4

REPORT INFORMATION
  Report Type: Spontaneous
  Country: EU (occurrence: EU)
  Receive Date: 20251221
  Receipt Date: 20251221
  Transmission Date: 20260117
  Serious: Yes (Other)
  Sender: MERCK SHARP & DOHME LLC
  Company Number: EU-009507513-2361784

PATIENT
  Age: 59 Year
  Sex: Female

DRUGS (4)
  1. DORAVIRINE [Suspect]
     Active Substance: DORAVIRINE
     Indication: HIV infection
     Dosage: 100 MG 1 TABLET X 2
     Route: 048
     Dates: start: 2025
  2. DORAVIRINE [Suspect]
     Active Substance: DORAVIRINE
     Indication: HIV infection
     Route: 048
     Dates: start: 202201, end: 2025
  3. DOLUTEGRAVIR [Suspect]
     Active Substance: DOLUTEGRAVIR
     Indication: HIV infection
     Dosage: STRENGTH: 50 MG
     Route: 048
     Dates: start: 202201
  4. ROSUVASTATIN [Concomitant]
     Active Substance: ROSUVASTATIN
     Indication: Dyslipidaemia

REACTIONS (2)
  - Ductal adenocarcinoma of pancreas [Unknown]
  - Off label use [Unknown]

NARRATIVE: CASE EVENT DATE: 20250101
